FAERS Safety Report 19634005 (Version 2)
Quarter: 2021Q3

REPORT INFORMATION
  Report Type: Spontaneous
  Country: JP (occurrence: JP)
  Receive Date: 20210729
  Receipt Date: 20210809
  Transmission Date: 20211014
  Serious: Yes (Hospitalization, Other)
  Sender: FDA-Public Use
  Company Number: JP-BAYER-2021-184588

PATIENT
  Age: 81 Year
  Sex: Male

DRUGS (1)
  1. XOFIGO [Suspect]
     Active Substance: RADIUM RA-223 DICHLORIDE
     Indication: METASTASES TO BONE
     Dosage: UNK
     Dates: start: 20210611, end: 20210707

REACTIONS (3)
  - Malignant neoplasm progression [None]
  - Decreased appetite [Recovering/Resolving]
  - Prostatic specific antigen increased [None]

NARRATIVE: CASE EVENT DATE: 20210724
